FAERS Safety Report 8132324-9 (Version None)
Quarter: 2012Q1

REPORT INFORMATION
  Report Type: 
  Country: None (occurrence: None)
  Receive Date: 20120213
  Receipt Date: 20120206
  Transmission Date: 20120608
  Serious: Yes (Hospitalization)
  Sender: FDA-Public Use
  Company Number: US-BAYER-2011-029564

PATIENT
  Age: 49 Year
  Sex: Female
  Weight: 64 kg

DRUGS (8)
  1. ALLERGY MEDICATION [Concomitant]
     Indication: MULTIPLE ALLERGIES
  2. IBUPROFEN [Concomitant]
  3. BECONASE [Concomitant]
     Indication: EAR INFECTION
     Route: 045
  4. FLUTICASONE PROPIONATE [Concomitant]
     Indication: INFECTION PROPHYLAXIS
     Dosage: UNK
     Dates: start: 20020101
  5. ALLEGRA [Concomitant]
  6. KEFLEX [Concomitant]
     Indication: RHINITIS
  7. YASMIN [Suspect]
     Indication: MENSTRUAL CYCLE MANAGEMENT
     Dosage: UNK
     Dates: start: 20010101, end: 20090721
  8. NAPROXEN [Concomitant]

REACTIONS (3)
  - PULMONARY EMBOLISM [None]
  - INJURY [None]
  - PAIN [None]
